FAERS Safety Report 12607312 (Version 1)
Quarter: 2016Q3

REPORT INFORMATION
  Report Type: Spontaneous
  Country: GB (occurrence: GB)
  Receive Date: 20160729
  Receipt Date: 20160729
  Transmission Date: 20161109
  Serious: Yes (Other)
  Sender: FDA-Public Use
  Company Number: GB-PFIZER INC-2016319583

PATIENT
  Sex: Male

DRUGS (1)
  1. EFEXOR XL [Suspect]
     Active Substance: VENLAFAXINE HYDROCHLORIDE
     Dosage: UNK
     Route: 048

REACTIONS (5)
  - Therapeutic response unexpected [Unknown]
  - Product substitution issue [Unknown]
  - Dyspnoea [Unknown]
  - Drug ineffective [Unknown]
  - Waxy flexibility [Unknown]
